FAERS Safety Report 25022385 (Version 1)
Quarter: 2025Q1

REPORT INFORMATION
  Report Type: Spontaneous
  Country: IT (occurrence: IT)
  Receive Date: 20250228
  Receipt Date: 20250228
  Transmission Date: 20250409
  Serious: Yes (Death, Other)
  Sender: SANDOZ
  Company Number: IT-SANDOZ-SDZ2025IT012347

PATIENT
  Age: 63 Year
  Sex: Female

DRUGS (1)
  1. ACETAMINOPHEN [Suspect]
     Active Substance: ACETAMINOPHEN
     Indication: Product used for unknown indication
     Route: 065

REACTIONS (9)
  - Bullous haemorrhagic dermatosis [Fatal]
  - Epidermolysis [Fatal]
  - Rhabdomyolysis [Fatal]
  - Disseminated intravascular coagulation [Fatal]
  - Myocardial ischaemia [Fatal]
  - Septic shock [Fatal]
  - Presyncope [Unknown]
  - Confusional state [Unknown]
  - Asthenia [Unknown]
